FAERS Safety Report 7321501-2 (Version None)
Quarter: 2011Q1

REPORT INFORMATION
  Report Type: 
  Country: None (occurrence: None)
  Receive Date: 20110228
  Receipt Date: 20110223
  Transmission Date: 20110831
  Serious: Yes (Life-Threatening, Hospitalization)
  Sender: FDA-Public Use
  Company Number: US-US-EMD SERONO, INC.-7034373

PATIENT
  Sex: Female
  Weight: 59 kg

DRUGS (2)
  1. REBIF [Suspect]
     Indication: MULTIPLE SCLEROSIS
     Route: 058
     Dates: start: 20101010, end: 20110124
  2. KEPPRA [Concomitant]
     Indication: CONVULSION
     Dates: start: 20070101, end: 20110124

REACTIONS (8)
  - INJECTION SITE NODULE [None]
  - CONVULSION [None]
  - GASTROINTESTINAL DISORDER [None]
  - URINARY TRACT INFECTION [None]
  - RESPIRATORY ARREST [None]
  - MULTIPLE SCLEROSIS RELAPSE [None]
  - ASTHENIA [None]
  - GAIT DISTURBANCE [None]
